FAERS Safety Report 8060039-4 (Version None)
Quarter: 2012Q1

REPORT INFORMATION
  Report Type: 
  Country: None (occurrence: None)
  Receive Date: 20120120
  Receipt Date: 20120119
  Transmission Date: 20120608
  Serious: Yes (Life-Threatening, Hospitalization)
  Sender: FDA-Public Use
  Company Number: GB-BAYER-2012-004125

PATIENT
  Sex: Male

DRUGS (1)
  1. ULTRAVIST 300 [Suspect]
     Dosage: 40 ML, UNK
     Dates: start: 20120113, end: 20120113

REACTIONS (8)
  - HYPOTENSION [None]
  - DYSPNOEA [None]
  - ERYTHEMA [None]
  - SWELLING FACE [None]
  - CHILLS [None]
  - CARDIAC ARREST [None]
  - TREMOR [None]
  - BODY TEMPERATURE INCREASED [None]
